FAERS Safety Report 9679486 (Version 1)
Quarter: 2013Q4

REPORT INFORMATION
  Report Type: Spontaneous
  Country: US (occurrence: US)
  Receive Date: 20131109
  Receipt Date: 20131109
  Transmission Date: 20140711
  Serious: No
  Sender: FDA-Public Use
  Company Number: US-SANOFI-AVENTIS-2013SA055169

PATIENT
  Age: 27 Year
  Sex: Female
  Weight: 58.96 kg

DRUGS (2)
  1. ALLEGRA-D [Suspect]
     Indication: HYPERSENSITIVITY
     Dosage: PRODUCT END DATE: AFTER 7 DAYS
     Route: 048
     Dates: start: 20130501, end: 20130510
  2. ALL OTHER THERAPEUTIC PRODUCTS [Concomitant]
     Indication: CONTRACEPTION

REACTIONS (2)
  - Medication residue present [Unknown]
  - Drug ineffective [Unknown]
